FAERS Safety Report 10417939 (Version 1)
Quarter: 2014Q2

REPORT INFORMATION
  Report Type: Spontaneous
  Country: US (occurrence: None)
  Receive Date: 20140609
  Receipt Date: 20140609
  Transmission Date: 20141212
  Serious: No
  Sender: FDA-Public Use
  Company Number: 2014TUS000988

PATIENT
  Sex: Male

DRUGS (2)
  1. BRINTELLIX (VORTIOXETINE) TABLET, 20MG [Suspect]
     Indication: MAJOR DEPRESSION
     Route: 048
     Dates: start: 20140107, end: 20140112
  2. BRINTELLIX (VORTIOXETINE) TABLET, 20MG [Suspect]
     Indication: DEPRESSION
     Route: 048
     Dates: start: 20140107, end: 20140112

REACTIONS (2)
  - Drug ineffective [None]
  - Pruritus [None]
